FAERS Safety Report 6886365-X (Version None)
Quarter: 2010Q3

REPORT INFORMATION
  Report Type: 
  Country: None (occurrence: None)
  Receive Date: 20100729
  Receipt Date: 20090417
  Transmission Date: 20110219
  Serious: No
  Sender: FDA-Public Use
  Company Number: US-PFIZER INC-2009179879

PATIENT
  Sex: Female
  Weight: 79.365 kg

DRUGS (6)
  1. CELEBREX [Suspect]
     Indication: ARTHRITIS
     Dosage: 20 MG, 1X/DAY
     Dates: start: 20090303
  2. SIMVASTATIN [Concomitant]
     Dosage: UNK
  3. PERCOCET [Concomitant]
     Dosage: UNK
  4. CYMBALTA [Concomitant]
     Dosage: UNK
  5. PROCARDIA [Concomitant]
     Dosage: UNK
  6. ACETYLSALICYLIC ACID [Concomitant]
     Dosage: UNK

REACTIONS (1)
  - FUNGAL INFECTION [None]
